FAERS Safety Report 5122108-8 (Version None)
Quarter: 2006Q4

REPORT INFORMATION
  Report Type: 
  Country: None (occurrence: None)
  Receive Date: 20061004
  Receipt Date: 20061004
  Transmission Date: 20070319
  Serious: Yes (Hospitalization)
  Sender: FDA-Public Use
  Company Number: None

PATIENT
  Age: 74 Year
  Sex: Male

DRUGS (2)
  1. HEPARIN [Suspect]
     Indication: DEEP VEIN THROMBOSIS
     Dosage: 18 UNIT/KG/HR IV CONTINUOUS
     Route: 042
     Dates: start: 20060802, end: 20060809
  2. HEPARIN [Suspect]
     Indication: PULMONARY EMBOLISM
     Dosage: 18 UNIT/KG/HR IV CONTINUOUS
     Route: 042
     Dates: start: 20060802, end: 20060809

REACTIONS (2)
  - ACTIVATED PARTIAL THROMBOPLASTIN TIME PROLONGED [None]
  - RETROPERITONEAL HAEMATOMA [None]
